FAERS Safety Report 10256259 (Version 4)
Quarter: 2014Q3

REPORT INFORMATION
  Report Type: Spontaneous
  Country: US (occurrence: US)
  Receive Date: 20140624
  Receipt Date: 20140725
  Transmission Date: 20150326
  Serious: No
  Sender: FDA-Public Use
  Company Number: US-PFIZER INC-2014157748

PATIENT
  Age: 46 Year
  Sex: Female
  Weight: 53.52 kg

DRUGS (1)
  1. LYRICA [Suspect]
     Active Substance: PREGABALIN
     Indication: NEURALGIA
     Dosage: 150 MG, 3X/DAY

REACTIONS (4)
  - Intentional product misuse [Unknown]
  - Drug prescribing error [Unknown]
  - Drug intolerance [Unknown]
  - Anger [Unknown]
